FAERS Safety Report 23802197 (Version 2)
Quarter: 2024Q2

REPORT INFORMATION
  Report Type: Spontaneous
  Country: US (occurrence: US)
  Receive Date: 20240501
  Receipt Date: 20240517
  Transmission Date: 20240716
  Serious: Yes (Life-Threatening, Hospitalization)
  Sender: FDA-Public Use
  Company Number: US-TEVA-VS-3190773

PATIENT
  Age: 28 Year
  Sex: Male

DRUGS (1)
  1. VENLAFAXINE [Suspect]
     Active Substance: VENLAFAXINE HYDROCHLORIDE
     Indication: Suicide attempt
     Dosage: 60+ PILLS OF 75MG VENLAFAXINE
     Route: 048

REACTIONS (4)
  - Seizure [Recovering/Resolving]
  - Respiratory acidosis [Recovering/Resolving]
  - Intentional overdose [Unknown]
  - Metabolic acidosis [Recovering/Resolving]
